FAERS Safety Report 18368256 (Version 3)
Quarter: 2021Q1

REPORT INFORMATION
  Report Type: Spontaneous
  Country: FI (occurrence: FI)
  Receive Date: 20201009
  Receipt Date: 20210326
  Transmission Date: 20210419
  Serious: Yes (Death, Life-Threatening)
  Sender: FDA-Public Use
  Company Number: FI-UCBSA-2020040580

PATIENT
  Age: 74 Year
  Sex: Female

DRUGS (9)
  1. KALISOL [Concomitant]
     Indication: PRODUCT USED FOR UNKNOWN INDICATION
     Dosage: 30,ML,DAILY
     Route: 048
  2. KETIPINOR [Concomitant]
     Active Substance: QUETIAPINE FUMARATE
     Indication: PRODUCT USED FOR UNKNOWN INDICATION
     Dosage: 12.5 MG,DAILY
     Route: 048
     Dates: start: 20200712
  3. KLEXANE [Concomitant]
     Active Substance: ENOXAPARIN
     Indication: PRODUCT USED FOR UNKNOWN INDICATION
     Dosage: 40,MG,
     Dates: start: 20200712
  4. ATORVASTATIN [Concomitant]
     Active Substance: ATORVASTATIN
     Indication: PRODUCT USED FOR UNKNOWN INDICATION
     Dosage: 10,MG,DAILY
     Route: 048
  5. VIMPAT [Concomitant]
     Active Substance: LACOSAMIDE
     Indication: PRODUCT USED FOR UNKNOWN INDICATION
     Dosage: 400,MG,DAILY
     Route: 048
     Dates: start: 20200714
  6. KEPPRA [Suspect]
     Active Substance: LEVETIRACETAM
     Indication: PROPHYLAXIS
     Dosage: 3 GRAM DAILY
     Route: 048
     Dates: start: 20200727, end: 20200826
  7. ACTRAPID [Concomitant]
     Active Substance: INSULIN HUMAN
     Indication: PRODUCT USED FOR UNKNOWN INDICATION
     Dosage: UNK
     Dates: start: 20200710
  8. ORADEXON [DEXAMETHASONE SODIUM PHOSPHATE] [Concomitant]
     Indication: PRODUCT USED FOR UNKNOWN INDICATION
     Dosage: 12,MG,
     Dates: start: 20200712
  9. SOMAC [Concomitant]
     Active Substance: PANTOPRAZOLE SODIUM
     Indication: PRODUCT USED FOR UNKNOWN INDICATION
     Dosage: 40,MG,DAILY
     Route: 048
     Dates: start: 20200710

REACTIONS (8)
  - Coagulopathy [Fatal]
  - Renal injury [Fatal]
  - Liver disorder [Fatal]
  - Product use issue [Unknown]
  - Toxic epidermal necrolysis [Fatal]
  - Dialysis [Fatal]
  - Multiple organ dysfunction syndrome [Fatal]
  - Plasmapheresis [Fatal]

NARRATIVE: CASE EVENT DATE: 20200727
